FAERS Safety Report 18063857 (Version 1)
Quarter: 2020Q3

REPORT INFORMATION
  Report Type: Other
  Country: BR (occurrence: BR)
  Receive Date: 20200724
  Receipt Date: 20200724
  Transmission Date: 20201103
  Serious: Yes (Death)
  Sender: FDA-Public Use
  Company Number: BR-ROCHE-2647958

PATIENT

DRUGS (1)
  1. TOCILIZUMAB. [Suspect]
     Active Substance: TOCILIZUMAB
     Indication: COVID-19
     Route: 042

REACTIONS (3)
  - Intentional product use issue [Unknown]
  - Septic shock [Fatal]
  - Off label use [Unknown]
